FAERS Safety Report 8801408 (Version 2)
Quarter: 2012Q4

REPORT INFORMATION
  Report Type: 
  Country: JP (occurrence: JP)
  Receive Date: 20120922
  Receipt Date: 20121008
  Transmission Date: 20130627
  Serious: Yes (Hospitalization)
  Sender: FDA-Public Use
  Company Number: JP-B.I. PHARMACEUTICALS,INC./RIDGEFIELD-2012-EU-04631GD

PATIENT
  Age: 62 Year
  Sex: Female

DRUGS (3)
  1. SIFROL [Suspect]
     Indication: PARKINSON^S DISEASE
     Dosage: 1.5 mg
  2. LEVODOPA [Suspect]
     Indication: PARKINSON^S DISEASE
     Dosage: 300 mg
  3. MILNACIPRAN [Concomitant]
     Indication: MAJOR DEPRESSION
     Dosage: 75 mg

REACTIONS (6)
  - Suicidal ideation [Unknown]
  - Major depression [Unknown]
  - Insomnia [Unknown]
  - Decreased appetite [Unknown]
  - Weight decreased [Unknown]
  - Decreased interest [Unknown]
